FAERS Safety Report 7418024-9 (Version None)
Quarter: 2011Q2

REPORT INFORMATION
  Report Type: 
  Country: None (occurrence: None)
  Receive Date: 20110412
  Receipt Date: 20110412
  Transmission Date: 20111010
  Serious: Yes (Other)
  Sender: FDA-Public Use
  Company Number: None

PATIENT
  Age: 58 Year
  Sex: Male
  Weight: 86.1834 kg

DRUGS (1)
  1. PRILOSEC OTC [Suspect]
     Indication: GASTROOESOPHAGEAL REFLUX DISEASE
     Dosage: 20MG QD OROPHARINGEAL
     Route: 049
     Dates: start: 19970901, end: 20110315

REACTIONS (3)
  - BLOOD MAGNESIUM DECREASED [None]
  - ORTHOSTATIC HYPOTENSION [None]
  - MUSCLE SPASMS [None]
